FAERS Safety Report 7821187-4 (Version None)
Quarter: 2011Q4

REPORT INFORMATION
  Report Type: 
  Country: None (occurrence: None)
  Receive Date: 20111018
  Receipt Date: 20111014
  Transmission Date: 20120403
  Serious: Yes (Hospitalization)
  Sender: FDA-Public Use
  Company Number: DE-B.I. PHARMACEUTICALS,INC./RIDGEFIELD-2011-DE-05802DE

PATIENT
  Sex: Male
  Weight: 100 kg

DRUGS (7)
  1. PRADAXA [Suspect]
     Indication: ARTERIAL THROMBOSIS
     Dosage: 300 MG
     Route: 048
     Dates: start: 20110915
  2. ATACAND HCT [Concomitant]
     Indication: HYPERTENSION
     Dosage: 16/12,5
     Route: 048
     Dates: start: 20050101
  3. THIAMAZOL [Concomitant]
     Indication: HYPERTHYROIDISM
     Dosage: 40 MG
     Route: 048
     Dates: start: 20110920
  4. METOPROLOL SUCCINATE [Concomitant]
     Indication: HYPERTENSION
     Dosage: 95 MG
     Route: 048
     Dates: start: 20110101
  5. IRENAT [Concomitant]
     Indication: HYPERTHYROIDISM
     Dosage: 60 ANZ
     Route: 048
     Dates: start: 20110920
  6. CYNT [Concomitant]
     Indication: HYPERTENSION
     Dosage: 0.6 MG
     Route: 048
     Dates: start: 20070101
  7. AMIODARONE HCL [Concomitant]
     Indication: CARDIAC FIBRILLATION
     Dosage: 200 MG
     Dates: start: 20110614

REACTIONS (3)
  - GASTRIC ULCER [None]
  - COAGULOPATHY [None]
  - GASTRIC HAEMORRHAGE [None]
